FAERS Safety Report 6554891-9 (Version None)
Quarter: 2010Q1

REPORT INFORMATION
  Report Type: 
  Country: None (occurrence: None)
  Receive Date: 20100125
  Receipt Date: 20100115
  Transmission Date: 20100710
  Serious: Yes (Other)
  Sender: FDA-Public Use
  Company Number: SPV1-2010-00107

PATIENT
  Age: 21 Year
  Sex: Male

DRUGS (1)
  1. ADDERALL XR 10 [Suspect]
     Indication: DRUG USE FOR UNKNOWN INDICATION

REACTIONS (2)
  - INSOMNIA [None]
  - SUICIDAL BEHAVIOUR [None]
